FAERS Safety Report 7395126-7 (Version None)
Quarter: 2011Q2

REPORT INFORMATION
  Report Type: 
  Country: None (occurrence: None)
  Receive Date: 20110405
  Receipt Date: 20110322
  Transmission Date: 20111010
  Serious: Yes (Other)
  Sender: FDA-Public Use
  Company Number: PHFR2011GB02119

PATIENT
  Age: 52 Year
  Sex: Female

DRUGS (1)
  1. ZOLEDRONIC ACID [Suspect]
     Indication: OSTEOPOROSIS
     Dosage: 5MG
     Route: 042
     Dates: start: 20100511, end: 20100511

REACTIONS (11)
  - DYSPNOEA [None]
  - LETHARGY [None]
  - NECK PAIN [None]
  - PALPITATIONS [None]
  - ABDOMINAL PAIN [None]
  - PAIN IN EXTREMITY [None]
  - CHEST PAIN [None]
  - TINNITUS [None]
  - BACK PAIN [None]
  - PARAESTHESIA [None]
  - DIZZINESS [None]
